FAERS Safety Report 10624694 (Version 1)
Quarter: 2014Q4

REPORT INFORMATION
  Report Type: Report from Study
  Country: NL (occurrence: NL)
  Receive Date: 20141204
  Receipt Date: 20141204
  Transmission Date: 20150529
  Serious: Yes (Hospitalization, Other)
  Sender: FDA-Public Use
  Company Number: NL-AMGEN-NLDSL2013094560

PATIENT
  Age: 51 Year
  Sex: Female

DRUGS (1)
  1. XGEVA [Suspect]
     Active Substance: DENOSUMAB
     Indication: PRODUCT USED FOR UNKNOWN INDICATION
     Dosage: 1.7 ML (70MG/ML), Q4WK
     Route: 065
     Dates: start: 20121213

REACTIONS (15)
  - Memory impairment [Unknown]
  - General physical health deterioration [Unknown]
  - Neoplasm progression [Unknown]
  - Tumour invasion [Unknown]
  - Pyrexia [Unknown]
  - Depressed mood [Unknown]
  - Feeling guilty [Unknown]
  - Arthropathy [Unknown]
  - Hospitalisation [Unknown]
  - Malaise [Unknown]
  - Terminal state [Unknown]
  - Neoplasm [Unknown]
  - Pain [Unknown]
  - Walking aid user [Unknown]
  - Fatigue [Unknown]
